FAERS Safety Report 25081023 (Version 2)
Quarter: 2025Q2

REPORT INFORMATION
  Report Type: Spontaneous
  Country: US (occurrence: US)
  Receive Date: 20250315
  Receipt Date: 20250630
  Transmission Date: 20250716
  Serious: No
  Sender: SANOFI AVENTIS
  Company Number: US-SA-2025SA073462

PATIENT
  Age: 40 Year
  Sex: Female

DRUGS (1)
  1. DUPIXENT [Suspect]
     Active Substance: DUPILUMAB
     Indication: Chronic rhinosinusitis with nasal polyps
     Dosage: 300 MG, QOW
     Route: 058
     Dates: start: 20250122

REACTIONS (8)
  - Nasal congestion [Unknown]
  - Flushing [Unknown]
  - Acne [Unknown]
  - Skin swelling [Unknown]
  - Pruritus [Unknown]
  - Erythema [Unknown]
  - Rosacea [Unknown]
  - Papule [Unknown]

NARRATIVE: CASE EVENT DATE: 20250101
